FAERS Safety Report 9181112 (Version 2)
Quarter: 2013Q1

REPORT INFORMATION
  Report Type: Spontaneous
  Country: US (occurrence: US)
  Receive Date: 20130322
  Receipt Date: 20130322
  Transmission Date: 20140127
  Serious: No
  Sender: FDA-Public Use
  Company Number: US-MYLANLABS-2012S1006178

PATIENT
  Age: 68 Year
  Sex: Female

DRUGS (7)
  1. EMSAM [Suspect]
     Indication: DEPRESSION
     Dosage: CHANGES EVERY DAY
     Route: 062
     Dates: start: 20120223
  2. LISINOPRIL [Concomitant]
  3. FELODIPINE [Concomitant]
  4. SIMVASTATIN [Concomitant]
  5. SYNTHROID [Concomitant]
  6. ZANTAC [Concomitant]
  7. POTASSIUM [Concomitant]

REACTIONS (2)
  - Application site rash [Not Recovered/Not Resolved]
  - Rash maculo-papular [None]
